FAERS Safety Report 6651363-8 (Version None)
Quarter: 2010Q1

REPORT INFORMATION
  Report Type: 
  Country: None (occurrence: None)
  Receive Date: 20100325
  Receipt Date: 20100312
  Transmission Date: 20100710
  Serious: Yes (Hospitalization, Other)
  Sender: FDA-Public Use
  Company Number: US-JNJFOC-20100304136

PATIENT
  Sex: Male
  Weight: 78.47 kg

DRUGS (4)
  1. DOXIL [Suspect]
     Indication: MULTIPLE MYELOMA
     Dosage: INFUSION 1
     Route: 042
  2. DOXIL [Suspect]
     Dosage: INFUSION 2
     Route: 042
  3. VELCADE [Concomitant]
     Indication: MULTIPLE MYELOMA
     Route: 065
  4. REVLIMID [Concomitant]
     Indication: MULTIPLE MYELOMA
     Dosage: 2 TREATMENTS
     Route: 065

REACTIONS (6)
  - INFUSION RELATED REACTION [None]
  - PLATELET COUNT DECREASED [None]
  - PYREXIA [None]
  - RED BLOOD CELL COUNT DECREASED [None]
  - SKIN LESION [None]
  - WHITE BLOOD CELL COUNT DECREASED [None]
